FAERS Safety Report 7429806-1 (Version None)
Quarter: 2011Q2

REPORT INFORMATION
  Report Type: 
  Country: None (occurrence: None)
  Receive Date: 20110421
  Receipt Date: 20110414
  Transmission Date: 20111010
  Serious: Yes (Hospitalization)
  Sender: FDA-Public Use
  Company Number: JP-MERCK-1103USA03772

PATIENT
  Age: 87 Year
  Sex: Female

DRUGS (12)
  1. FOSAMAX [Suspect]
     Indication: OSTEOPOROSIS
     Route: 048
     Dates: start: 20090101, end: 20110131
  2. GASLON [Concomitant]
     Route: 048
  3. KETOPROFEN [Concomitant]
     Route: 061
  4. ETODOLAC [Concomitant]
     Route: 048
  5. CALFINA [Concomitant]
     Route: 048
     Dates: start: 20110202
  6. ALSIODOL [Concomitant]
     Route: 048
  7. MYSLEE [Concomitant]
     Route: 048
  8. LORCAM [Concomitant]
     Route: 048
     Dates: start: 20110202
  9. EVISTA [Concomitant]
     Route: 048
     Dates: start: 20110202, end: 20110208
  10. MAGMITT [Concomitant]
     Route: 048
     Dates: start: 20110202
  11. CELECOX [Concomitant]
     Route: 048
     Dates: start: 20110202, end: 20110221
  12. SELBEX [Concomitant]
     Route: 048
     Dates: start: 20110202, end: 20110221

REACTIONS (1)
  - FEMUR FRACTURE [None]
